FAERS Safety Report 9292857 (Version 1)
Quarter: 2013Q2

REPORT INFORMATION
  Report Type: Spontaneous
  Country: US (occurrence: None)
  Receive Date: 20130515
  Receipt Date: 20130515
  Transmission Date: 20140414
  Serious: No
  Sender: FDA-Public Use
  Company Number: None

PATIENT
  Age: 61 Year
  Sex: Female

DRUGS (1)
  1. QUETIAPINE [Suspect]
     Dosage: 1/2 T QHS
     Route: 048
     Dates: start: 20121222, end: 20121226

REACTIONS (4)
  - Sedation [None]
  - Depression [None]
  - Memory impairment [None]
  - Disturbance in attention [None]
